FAERS Safety Report 8551719-2 (Version None)
Quarter: 2012Q3

REPORT INFORMATION
  Report Type: 
  Country: None (occurrence: None)
  Receive Date: 20120730
  Receipt Date: 20120725
  Transmission Date: 20120928
  Serious: Yes (Life-Threatening, Hospitalization)
  Sender: FDA-Public Use
  Company Number: US-ASTRAZENECA-2012SE45110

PATIENT
  Age: 53 Year
  Sex: Female
  Weight: 56.7 kg

DRUGS (12)
  1. SYMBICORT [Suspect]
     Indication: ASTHMA
     Dosage: 320MCG BID
     Route: 055
     Dates: start: 20110101
  2. ZOLOFT [Concomitant]
  3. DALIRESP [Concomitant]
     Indication: ASTHMA
  4. TYLENOL (CAPLET) [Concomitant]
  5. DUONEB [Concomitant]
     Indication: ASTHMA
  6. BACLOFEN [Concomitant]
  7. AMLODIOPINE [Concomitant]
     Indication: HYPERTENSION
  8. TRAMADOL HYDROCHLORIDE [Concomitant]
  9. NEURONTIN [Concomitant]
  10. PREDNISONE [Concomitant]
  11. CELEBREX [Concomitant]
  12. VENTOLIN [Concomitant]

REACTIONS (6)
  - CARDIAC DISORDER [None]
  - DRUG DOSE OMISSION [None]
  - DYSGEUSIA [None]
  - RESPIRATORY DISTRESS [None]
  - DYSPNOEA [None]
  - RESPIRATORY ARREST [None]
